FAERS Safety Report 11893913 (Version 1)
Quarter: 2016Q1

REPORT INFORMATION
  Report Type: Spontaneous
  Country: KR (occurrence: KR)
  Receive Date: 20160107
  Receipt Date: 20160107
  Transmission Date: 20160526
  Serious: Yes (Hospitalization)
  Sender: FDA-Public Use
  Company Number: KR-AMGEN-KORCT2015141057

PATIENT
  Age: 45 Year
  Sex: Female
  Weight: 49.8 kg

DRUGS (25)
  1. DOCETAXEL. [Concomitant]
     Active Substance: DOCETAXEL
     Dosage: 107 MG, UNK
     Route: 042
     Dates: start: 20150402, end: 20150402
  2. DUPHALAC EASY [Concomitant]
     Dosage: 45 ML, UNK
     Route: 048
     Dates: start: 20150316, end: 20150321
  3. NASEA [Concomitant]
     Active Substance: RAMOSETRON HYDROCHLORIDE
     Dosage: 0.3 MG, UNK
     Route: 042
     Dates: start: 20150311, end: 20150514
  4. DOCETAXEL. [Concomitant]
     Active Substance: DOCETAXEL
     Dosage: 107 MG, UNK
     Route: 042
     Dates: start: 20150423, end: 20150423
  5. DOXORUBICIN [Concomitant]
     Active Substance: DOXORUBICIN
     Dosage: 72 MG, UNK
     Route: 042
     Dates: start: 20150311, end: 20150311
  6. CYCLOPHOSPHAMIDE. [Concomitant]
     Active Substance: CYCLOPHOSPHAMIDE
     Dosage: 710 MG, UNK
     Route: 042
     Dates: start: 20150423, end: 20150423
  7. ULTRACET [Concomitant]
     Active Substance: ACETAMINOPHEN\TRAMADOL HYDROCHLORIDE
     Dosage: 2TAB
     Route: 048
     Dates: start: 20150311, end: 20150523
  8. CHLORPHENIRAMINE                   /00072501/ [Concomitant]
     Active Substance: CHLORPHENIRAMINE
     Dosage: 4 MG, UNK
     Route: 042
     Dates: start: 20150311, end: 20150514
  9. CYCLOPHOSPHAMIDE. [Concomitant]
     Active Substance: CYCLOPHOSPHAMIDE
     Dosage: 715 MG, UNK
     Route: 042
     Dates: start: 20150402, end: 20150402
  10. VITAMEDIN                          /00176001/ [Concomitant]
     Dosage: 100 MG, UNK
     Dates: start: 20150311, end: 20150523
  11. MACPERAN [Concomitant]
     Dosage: 15 MG, UNK
     Route: 048
     Dates: start: 20150405, end: 20150501
  12. SMECTA [Concomitant]
     Active Substance: MONTMORILLONITE
     Dosage: 9 G, UNK
     Route: 048
     Dates: start: 20150428, end: 20150501
  13. DOCETAXEL. [Concomitant]
     Active Substance: DOCETAXEL
     Dosage: 108 MG, UNK
     Route: 042
     Dates: start: 20150311, end: 20150311
  14. DOXORUBICIN [Concomitant]
     Active Substance: DOXORUBICIN
     Dosage: 72 MG, UNK
     Route: 042
     Dates: start: 20150402, end: 20150402
  15. G-LASTA [Suspect]
     Active Substance: PEGFILGRASTIM
     Dosage: 6 MG, 1X/3WEEKS
     Route: 058
     Dates: start: 20150424
  16. CYCLOPHOSPHAMIDE. [Concomitant]
     Active Substance: CYCLOPHOSPHAMIDE
     Dosage: 720 MG, UNK
     Route: 042
     Dates: start: 20150311, end: 20150311
  17. DEXAMETHASONE. [Concomitant]
     Active Substance: DEXAMETHASONE
     Dosage: 1.5 MG, UNK
     Route: 048
     Dates: start: 20150311, end: 20150319
  18. GASMOTIN [Concomitant]
     Active Substance: MOSAPRIDE CITRATE
     Dosage: 15 MG, UNK
     Route: 048
     Dates: start: 20150311, end: 20150520
  19. MAGNESIUM OXIDE. [Concomitant]
     Active Substance: MAGNESIUM OXIDE
     Dosage: 750 MG, UNK
     Route: 048
     Dates: start: 20150403, end: 20150413
  20. ALPHAMIN                           /00137202/ [Concomitant]
     Dosage: 500 ML, UNK
     Route: 042
     Dates: start: 20150312, end: 20150517
  21. G-LASTA [Suspect]
     Active Substance: PEGFILGRASTIM
     Indication: FEBRILE NEUTROPENIA
     Dosage: 6 MG, 1X/3WEEKS
     Route: 058
     Dates: start: 20150312
  22. G-LASTA [Suspect]
     Active Substance: PEGFILGRASTIM
     Dosage: 6 MG, 1X/3WEEKS
     Route: 058
     Dates: start: 20150403
  23. DOXORUBICIN [Concomitant]
     Active Substance: DOXORUBICIN
     Dosage: 71 MG, UNK
     Route: 042
     Dates: start: 20150423, end: 20150423
  24. MUTACIL [Concomitant]
     Dosage: 9.75 G, UNK
     Route: 048
     Dates: start: 20150406, end: 20150413
  25. ADRIAMYCIN [Concomitant]
     Active Substance: DOXORUBICIN HYDROCHLORIDE
     Dosage: 116 MG, UNK
     Route: 042
     Dates: start: 20150311, end: 20150514

REACTIONS (1)
  - Neutropenia [Recovered/Resolved]

NARRATIVE: CASE EVENT DATE: 20150430
